FAERS Safety Report 6733913-6 (Version None)
Quarter: 2010Q2

REPORT INFORMATION
  Report Type: 
  Country: None (occurrence: None)
  Receive Date: 20100520
  Receipt Date: 20100512
  Transmission Date: 20101027
  Serious: Yes (Hospitalization)
  Sender: FDA-Public Use
  Company Number: JP-ROCHE-703723

PATIENT
  Sex: Male

DRUGS (3)
  1. AVASTIN [Suspect]
     Indication: LUNG ADENOCARCINOMA
     Route: 042
     Dates: start: 20091124
  2. ALIMTA [Concomitant]
     Route: 042
  3. CISPLATIN [Concomitant]
     Route: 042

REACTIONS (1)
  - INTERSTITIAL LUNG DISEASE [None]
